FAERS Safety Report 23706309 (Version 3)
Quarter: 2024Q2

REPORT INFORMATION
  Report Type: Report from Study
  Country: CA (occurrence: CA)
  Receive Date: 20240404
  Receipt Date: 20240531
  Transmission Date: 20240715
  Serious: Yes (Hospitalization, Other)
  Sender: FDA-Public Use
  Company Number: CA-Korea IPSEN-2022-31714

PATIENT
  Age: 68 Year
  Sex: Female

DRUGS (5)
  1. LANREOTIDE ACETATE [Suspect]
     Active Substance: LANREOTIDE ACETATE
     Indication: Gastroenteropancreatic neuroendocrine tumour disease
     Dosage: 120 MG, VIA DEEP SUBCUTANEOUS ROUTE
     Route: 058
     Dates: start: 2022
  2. LANREOTIDE ACETATE [Suspect]
     Active Substance: LANREOTIDE ACETATE
     Dosage: 120 MG, VIA DEEP SUBCUTANEOUS ROUTE
     Route: 058
  3. EMOLAX [Concomitant]
  4. DILAUDID [Concomitant]
     Active Substance: HYDROMORPHONE HYDROCHLORIDE
  5. ESTROGENS [Concomitant]
     Active Substance: ESTROGENS
     Dosage: VAGINAL CREAM
     Route: 067

REACTIONS (32)
  - Intestinal obstruction [Unknown]
  - Loss of consciousness [Recovered/Resolved]
  - Abdominal pain [Recovered/Resolved]
  - Dyspepsia [Recovered/Resolved]
  - Abdominal distension [Recovered/Resolved]
  - Constipation [Recovered/Resolved]
  - Blood pressure decreased [Recovering/Resolving]
  - Vomiting [Recovered/Resolved]
  - Malignant neoplasm progression [Unknown]
  - Duodenogastric reflux [Recovered/Resolved]
  - Abdominal pain [Recovered/Resolved]
  - Nausea [Recovered/Resolved]
  - Abdominal distension [Recovered/Resolved]
  - Vomiting [Recovered/Resolved]
  - Nausea [Recovered/Resolved]
  - Abnormal faeces [Not Recovered/Not Resolved]
  - Faeces soft [Recovered/Resolved]
  - Flatulence [Recovered/Resolved]
  - Faecal volume decreased [Recovered/Resolved]
  - Nasopharyngitis [Not Recovered/Not Resolved]
  - Sneezing [Not Recovered/Not Resolved]
  - Gastrointestinal inflammation [Recovered/Resolved]
  - Nausea [Recovered/Resolved]
  - Vomiting [Recovered/Resolved]
  - Abdominal pain [Recovered/Resolved]
  - Duodenogastric reflux [Recovered/Resolved]
  - Abdominal distension [Recovered/Resolved]
  - Gastrointestinal inflammation [Recovered/Resolved]
  - Abdominal pain upper [Recovered/Resolved]
  - Dyspepsia [Recovered/Resolved]
  - Calcium metabolism disorder [Not Recovered/Not Resolved]
  - Off label use [Unknown]

NARRATIVE: CASE EVENT DATE: 20221101
